FAERS Safety Report 13385583 (Version 1)
Quarter: 2017Q1

REPORT INFORMATION
  Report Type: Spontaneous
  Country: US (occurrence: US)
  Receive Date: 20170330
  Receipt Date: 20170330
  Transmission Date: 20170429
  Serious: Yes (Hospitalization, Other)
  Sender: FDA-Public Use
  Company Number: US-PFIZER INC-2017134117

PATIENT
  Age: 1 Year
  Sex: Male

DRUGS (4)
  1. METHADONE [Concomitant]
     Active Substance: METHADONE HYDROCHLORIDE
     Dosage: 0.6 ML, 4X/DAY, ^0.6ML EVERY 6 HOURS^
  2. RANITIDINE. [Concomitant]
     Active Substance: RANITIDINE
     Dosage: 1.5 ML, 2X/DAY
  3. R-GENE [Suspect]
     Active Substance: ARGININE HYDROCHLORIDE
     Indication: LUNG DISORDER
     Dosage: UNK
     Dates: start: 2016
  4. R-GENE [Suspect]
     Active Substance: ARGININE HYDROCHLORIDE
     Indication: SUPPLEMENTATION THERAPY
     Dosage: 1.693 MG, 3X/DAY
     Dates: start: 20170322

REACTIONS (2)
  - Pneumonia [Recovering/Resolving]
  - Product use issue [Unknown]

NARRATIVE: CASE EVENT DATE: 2016
